FAERS Safety Report 22202949 (Version 1)
Quarter: 2023Q2

REPORT INFORMATION
  Report Type: Spontaneous
  Country: US (occurrence: None)
  Receive Date: 20230412
  Receipt Date: 20230412
  Transmission Date: 20230722
  Serious: No
  Sender: FDA-Public Use
  Company Number: None

PATIENT
  Sex: Male
  Weight: 52.93 kg

DRUGS (1)
  1. CISPLATIN [Suspect]
     Active Substance: CISPLATIN

REACTIONS (7)
  - Secretion discharge [None]
  - Dysphagia [None]
  - Eating disorder [None]
  - Lymphocyte count decreased [None]
  - Tachycardia [None]
  - Heart rate irregular [None]
  - Atrial flutter [None]

NARRATIVE: CASE EVENT DATE: 20230403
